FAERS Safety Report 12375684 (Version 4)
Quarter: 2016Q3

REPORT INFORMATION
  Report Type: Report from Study
  Country: ES (occurrence: ES)
  Receive Date: 20160517
  Receipt Date: 20160725
  Transmission Date: 20161109
  Serious: Yes (Death, Other)
  Sender: FDA-Public Use
  Company Number: ES-SA-MOZO-1000904

PATIENT
  Age: 63 Year
  Sex: Male
  Weight: 96 kg

DRUGS (33)
  1. G-CSF [Suspect]
     Active Substance: GRANULOCYTE COLONY-STIMULATING FACTOR NOS
     Indication: ACUTE MYELOID LEUKAEMIA
     Dosage: 480 MG, UNK
     Route: 058
     Dates: start: 20130801, end: 20130804
  2. BUSCAPINA [Concomitant]
     Active Substance: BUTYLSCOPOLAMINE BROMIDE
     Dates: start: 20130820, end: 20130820
  3. TRAMADOL. [Concomitant]
     Active Substance: TRAMADOL
     Dates: start: 20130817, end: 20130818
  4. MOZOBIL [Suspect]
     Active Substance: PLERIXAFOR
     Indication: ACUTE MYELOID LEUKAEMIA
     Dosage: 19200 MG, Q12HR, INDUCTION PHASE
     Route: 042
     Dates: start: 20130801, end: 20130804
  5. IDARUBICIN [Suspect]
     Active Substance: IDARUBICIN
     Indication: ACUTE MYELOID LEUKAEMIA
     Dosage: 21 MG, UNK
     Route: 042
     Dates: start: 20130801, end: 20130803
  6. LEVOFLOXACIN. [Concomitant]
     Active Substance: LEVOFLOXACIN
     Indication: PROPHYLAXIS
     Dates: start: 20130802
  7. FUROSEMIDE. [Concomitant]
     Active Substance: FUROSEMIDE
     Dates: start: 20130813
  8. BUSCAPINA [Concomitant]
     Active Substance: BUTYLSCOPOLAMINE BROMIDE
     Dates: start: 20130815, end: 20130817
  9. LARGACTIL [Concomitant]
     Active Substance: CHLORPROMAZINE
     Dates: start: 20130824
  10. ACTOCORTINA [Concomitant]
     Active Substance: HYDROCORTISONE SODIUM PHOSPHATE
     Dates: start: 20130819, end: 20130819
  11. MEROPENEM. [Concomitant]
     Active Substance: MEROPENEM
     Dates: start: 20130802
  12. AMIKACIN [Concomitant]
     Active Substance: AMIKACIN
     Dates: start: 20130819, end: 20130823
  13. FLUDARABINE PHOSPHATE. [Suspect]
     Active Substance: FLUDARABINE PHOSPHATE
     Indication: ACUTE MYELOID LEUKAEMIA
     Dosage: 64 MG, UNK, INDUCTION PHASE
     Route: 042
     Dates: start: 20130801, end: 20130804
  14. FLUCONAZOLE. [Concomitant]
     Active Substance: FLUCONAZOLE
     Indication: PROPHYLAXIS
     Dates: start: 20130802
  15. BUSCAPINA [Concomitant]
     Active Substance: BUTYLSCOPOLAMINE BROMIDE
     Dates: start: 20130813, end: 20130813
  16. FOSFOMYCIN [Concomitant]
     Active Substance: FOSFOMYCIN
     Dates: start: 20130827
  17. VOLTAREN [Concomitant]
     Active Substance: DICLOFENAC SODIUM
     Dates: start: 20130818, end: 20130819
  18. CYTARABINE. [Suspect]
     Active Substance: CYTARABINE
     Indication: ACUTE MYELOID LEUKAEMIA
     Dosage: 4296 MG, UNK
     Route: 042
     Dates: start: 20130801, end: 20130804
  19. NPH INSULIN [Concomitant]
     Active Substance: INSULIN BEEF
  20. PARACETAMOL [Concomitant]
     Active Substance: ACETAMINOPHEN
     Dates: start: 20130802
  21. ACICLOVIR [Concomitant]
     Active Substance: ACYCLOVIR
     Indication: PROPHYLAXIS
     Dates: start: 20130802, end: 20130819
  22. VANCOMYCIN [Concomitant]
     Active Substance: VANCOMYCIN
     Dates: start: 20130803, end: 20130817
  23. ENANTYUM [Concomitant]
     Active Substance: DEXKETOPROFEN TROMETAMOL
     Dates: start: 20130813, end: 20130813
  24. GELAFUNDINA [Concomitant]
     Dates: start: 20130820, end: 20130820
  25. AMIKACIN [Concomitant]
     Active Substance: AMIKACIN
     Dates: start: 20130809, end: 20130815
  26. METRONIDAZOLE. [Concomitant]
     Active Substance: METRONIDAZOLE
     Dates: start: 20130817, end: 20130817
  27. ANIDULAFUNGIN [Concomitant]
     Active Substance: ANIDULAFUNGIN
     Dates: start: 20130824
  28. TRAMADOL. [Concomitant]
     Active Substance: TRAMADOL
     Dates: start: 20130815, end: 20130815
  29. HYOSCINE BUTYLBROMIDE [Concomitant]
     Active Substance: BUTYLSCOPOLAMINE
     Dates: start: 20130816, end: 20130816
  30. DAPTOMYCIN. [Concomitant]
     Active Substance: DAPTOMYCIN
     Dates: start: 20130817
  31. METASEDIN [Concomitant]
     Dates: start: 20130824, end: 20130824
  32. PRIMPERAN [Concomitant]
     Active Substance: METOCLOPRAMIDE HYDROCHLORIDE
     Dates: start: 20130824, end: 20130824
  33. ZOFRAN [Concomitant]
     Active Substance: ONDANSETRON HYDROCHLORIDE
     Dates: start: 20130825, end: 20130825

REACTIONS (8)
  - Shock [Fatal]
  - Gastrointestinal fungal infection [Fatal]
  - Atelectasis [Not Recovered/Not Resolved]
  - Pericardial effusion [Not Recovered/Not Resolved]
  - Gastrointestinal necrosis [Not Recovered/Not Resolved]
  - Pleural effusion [Not Recovered/Not Resolved]
  - Multiple organ dysfunction syndrome [Fatal]
  - Hepatic infection fungal [Fatal]

NARRATIVE: CASE EVENT DATE: 20130813
